FAERS Safety Report 8817686 (Version 3)
Quarter: 2013Q1

REPORT INFORMATION
  Report Type: Report from Study
  Country: CA (occurrence: CA)
  Receive Date: 20121001
  Receipt Date: 20130208
  Transmission Date: 20140127
  Serious: Yes (Death, Other)
  Sender: FDA-Public Use
  Company Number: PHHY2012CA084360

PATIENT
  Age: 31 Year
  Sex: Female

DRUGS (8)
  1. CLOZARIL [Suspect]
     Indication: SCHIZOAFFECTIVE DISORDER
     Dates: start: 20120809
  2. CLOZARIL [Suspect]
     Dosage: 675 MG, DAILY
     Route: 048
     Dates: start: 20120827
  3. CLOZARIL [Suspect]
     Dosage: 750 MG, DAILY
  4. SENNOSIDE [Concomitant]
     Dosage: 8.6 UKN, QD
  5. VENLAFAXINE [Concomitant]
     Dosage: 75 MG, UNK
     Dates: start: 20120822
  6. DIVALPROEX [Concomitant]
     Dosage: 750 MG, BID
     Route: 048
     Dates: start: 20120822
  7. ALESSE [Concomitant]
     Dates: start: 20120707
  8. DOCUSATE [Concomitant]
     Dosage: 200 MG, UNK
     Dates: start: 20120730

REACTIONS (2)
  - Cardiac arrest [Fatal]
  - Tachycardia [Unknown]
